FAERS Safety Report 9282771 (Version 1)
Quarter: 2013Q2

REPORT INFORMATION
  Report Type: Report from Study
  Country: PK (occurrence: PK)
  Receive Date: 20130510
  Receipt Date: 20130510
  Transmission Date: 20140414
  Serious: Yes (Other)
  Sender: FDA-Public Use
  Company Number: PHHY2013PK045725

PATIENT
  Age: 61 Year
  Sex: Female

DRUGS (2)
  1. ACLASTA [Suspect]
     Indication: OSTEOPOROSIS
     Dosage: 5 MG/100ML , ONCE A YEAR
     Route: 042
     Dates: start: 20120508
  2. CALCIUM [Concomitant]
     Indication: OSTEOPOROSIS
     Dosage: UNK UKN, QD
     Route: 048
     Dates: start: 20120508

REACTIONS (1)
  - Radius fracture [Recovered/Resolved]
